FAERS Safety Report 4851347-6 (Version None)
Quarter: 2005Q4

REPORT INFORMATION
  Report Type: 
  Country: None (occurrence: None)
  Receive Date: 20051212
  Receipt Date: 20051108
  Transmission Date: 20060501
  Serious: Yes (Hospitalization, Other)
  Sender: FDA-Public Use
  Company Number: PHHO2005AR17542

PATIENT
  Age: 81 Year
  Sex: Male
  Weight: 87.5 kg

DRUGS (7)
  1. VALSARTAN [Suspect]
     Indication: CARDIOVASCULAR DISORDER
     Dosage: 160 MG
     Route: 048
  2. ASPIRIN [Concomitant]
  3. CILOSTAZOL [Concomitant]
  4. SULFAMIDA [Concomitant]
  5. NATEGLINIDE [Suspect]
     Indication: GLUCOSE TOLERANCE IMPAIRED
     Dosage: LEVEL 1
     Route: 048
     Dates: start: 20030303
  6. NATEGLINIDE [Suspect]
     Dosage: LEVEL 2
     Route: 048
  7. AMLODIPINE [Concomitant]

REACTIONS (5)
  - BALANCE DISORDER [None]
  - BLINDNESS [None]
  - CEREBRAL ISCHAEMIA [None]
  - DISEASE PROGRESSION [None]
  - ISCHAEMIC STROKE [None]
